FAERS Safety Report 11667889 (Version 1)
Quarter: 2015Q4

REPORT INFORMATION
  Report Type: Spontaneous
  Country: US (occurrence: US)
  Receive Date: 20151027
  Receipt Date: 20151027
  Transmission Date: 20160304
  Serious: No
  Sender: FDA-Public Use
  Company Number: US-ELI_LILLY_AND_COMPANY-US201003001919

PATIENT
  Age: 68 Year
  Sex: Female

DRUGS (1)
  1. FORTEO [Suspect]
     Active Substance: TERIPARATIDE
     Indication: OSTEOPOROSIS
     Dosage: 20 UG, DAILY (1/D)
     Dates: start: 20100217, end: 20100226

REACTIONS (7)
  - Feeling hot [Recovering/Resolving]
  - Tremor [Not Recovered/Not Resolved]
  - Vomiting [Recovering/Resolving]
  - Body temperature increased [Not Recovered/Not Resolved]
  - Malaise [Recovering/Resolving]
  - Anxiety [Unknown]
  - Nausea [Recovering/Resolving]

NARRATIVE: CASE EVENT DATE: 2010
